FAERS Safety Report 24395343 (Version 2)
Quarter: 2025Q1

REPORT INFORMATION
  Report Type: Report from Study
  Country: US (occurrence: US)
  Receive Date: 20241004
  Receipt Date: 20250103
  Transmission Date: 20250409
  Serious: Yes (Hospitalization, Other)
  Sender: ALEXION PHARMACEUTICALS
  Company Number: US-AstraZeneca-CH-00716514A

PATIENT

DRUGS (4)
  1. SOLIRIS [Suspect]
     Active Substance: ECULIZUMAB
     Indication: Myasthenia gravis
     Route: 065
  2. SOLIRIS [Suspect]
     Active Substance: ECULIZUMAB
     Route: 065
  3. SOLIRIS [Suspect]
     Active Substance: ECULIZUMAB
     Route: 065
  4. SOLIRIS [Suspect]
     Active Substance: ECULIZUMAB
     Route: 065

REACTIONS (4)
  - Nephrolithiasis [Recovering/Resolving]
  - Renal procedural complication [Recovering/Resolving]
  - Renal haemorrhage [Recovering/Resolving]
  - Renal haematoma [Recovering/Resolving]
